FAERS Safety Report 4349997-9 (Version None)
Quarter: 2004Q2

REPORT INFORMATION
  Report Type: 
  Country: None (occurrence: None)
  Receive Date: 20040426
  Receipt Date: 20040408
  Transmission Date: 20050107
  Serious: Yes (Death)
  Sender: FDA-Public Use
  Company Number: 192996

PATIENT
  Age: 49 Year
  Sex: Male

DRUGS (4)
  1. AVONEX [Suspect]
     Indication: MULTIPLE SCLEROSIS
  2. ANTIPSYCHOTIC MEDICATION [Concomitant]
  3. ANTIDEPRESSANTS (NOS) [Concomitant]
  4. HIV MEDICATION [Concomitant]

REACTIONS (3)
  - CONTUSION [None]
  - DRUG DEPENDENCE [None]
  - MYOCARDIAL INFARCTION [None]
